FAERS Safety Report 23552399 (Version 2)
Quarter: 2024Q1

REPORT INFORMATION
  Report Type: Spontaneous
  Country: US (occurrence: US)
  Receive Date: 20240222
  Receipt Date: 20240301
  Transmission Date: 20240410
  Serious: Yes (Hospitalization, Other)
  Sender: FDA-Public Use
  Company Number: US-SK LIFE SCIENCE, INC.-SKPVG-2024-000231

PATIENT

DRUGS (35)
  1. XCOPRI [Suspect]
     Active Substance: CENOBAMATE
     Indication: Epilepsy
     Route: 048
  2. XCOPRI [Suspect]
     Active Substance: CENOBAMATE
     Dosage: 250 MILLIGRAM, EVERY NIGHT
     Route: 048
     Dates: end: 20231130
  3. XCOPRI [Suspect]
     Active Substance: CENOBAMATE
     Dosage: 200 MILLIGRAM, (ONCE DAILY AT BEDTIME)
     Route: 065
     Dates: end: 20231201
  4. XCOPRI [Suspect]
     Active Substance: CENOBAMATE
     Dosage: 50 MILLIGRAM, (ONCE DAILY AT BEDTIME)
     Route: 065
     Dates: end: 20231201
  5. BRIVIACT [Concomitant]
     Active Substance: BRIVARACETAM
     Indication: Epilepsy
     Dosage: 200 MILLIGRAM
     Route: 065
  6. GABAPENTIN [Concomitant]
     Active Substance: GABAPENTIN
     Indication: Product used for unknown indication
     Route: 065
  7. INSULIN NOS [Concomitant]
     Active Substance: INSULIN NOS
     Indication: Diabetes mellitus
     Dosage: UNK
     Route: 065
  8. LOSARTAN [Concomitant]
     Active Substance: LOSARTAN
     Indication: Diabetic nephropathy
     Dosage: 0.5 TABLET OF 25MG  PILLS
     Route: 065
  9. EZETIMIBE [Concomitant]
     Active Substance: EZETIMIBE
     Indication: Blood triglycerides
     Dosage: 10 MILLIGRAM, 1 TABLET TWICE DAILY
     Route: 065
  10. METOCLOPRAMIDE [Concomitant]
     Active Substance: METOCLOPRAMIDE
     Indication: Product used for unknown indication
     Dosage: 5MG, 1 TABLET 3 TIMES DAILY
     Route: 065
  11. LORAZEPAM [Concomitant]
     Active Substance: LORAZEPAM
     Indication: Epilepsy
     Dosage: 1MG, ONLY CAN TAKE UP TO 4 PILLS EVERY 24 HOURS
     Route: 065
  12. PROBIOTICS NOS [Concomitant]
     Active Substance: PROBIOTICS NOS
     Indication: Product used for unknown indication
     Route: 065
  13. MINERALS\VITAMINS [Concomitant]
     Active Substance: MINERALS\VITAMINS
     Indication: Product used for unknown indication
     Route: 065
  14. VITAMIN D3 [Concomitant]
     Active Substance: CHOLECALCIFEROL
     Indication: Vitamin D deficiency
     Dosage: 50000 INTERNATIONAL UNIT, QWK
     Route: 065
  15. TYLENOL [Concomitant]
     Active Substance: ACETAMINOPHEN
     Indication: Pain
     Dosage: 500 MILLIGRAM, PRN (TWO TABLETS)
     Route: 065
  16. IBUPROFEN [Concomitant]
     Active Substance: IBUPROFEN
     Indication: Pain
     Dosage: 200 MILLIGRAM, PRN
     Route: 065
  17. SERTRALINE [Concomitant]
     Active Substance: SERTRALINE HYDROCHLORIDE
     Indication: Product used for unknown indication
     Dosage: 100MG TWO TABLETS BY MOUTH ONCE DAILY
     Route: 048
  18. ROSUVASTATIN [Concomitant]
     Active Substance: ROSUVASTATIN
     Indication: Product used for unknown indication
     Dosage: 20MG, 1 TABLET DAILY
     Route: 065
  19. MIDAZOLAM [Concomitant]
     Active Substance: MIDAZOLAM
     Indication: Product used for unknown indication
     Route: 065
  20. SUMATRIPTAN [Concomitant]
     Active Substance: SUMATRIPTAN
     Indication: Migraine
     Dosage: 25 MILLIGRAM
     Route: 065
  21. ASTHMA                             /00021402/ [Concomitant]
     Indication: Wheezing
     Dosage: 2 PUFFS EVERY FOUR HOURS
     Route: 065
  22. FLUTICASONE [Concomitant]
     Active Substance: FLUTICASONE
     Indication: Hypersensitivity
     Dosage: 50 MICROGRAM (1 SPRAY EACH NOSTRIL;)
     Route: 065
  23. TIZANIDINE [Concomitant]
     Active Substance: TIZANIDINE
     Indication: Muscle spasms
     Dosage: 4 MILLIGRAM (0.5-1 PILL AS NEEDED)
     Route: 065
  24. ONDANSETRON [Concomitant]
     Active Substance: ONDANSETRON
     Indication: Impaired gastric emptying
     Dosage: 4 MILLIGRAM, QD (ONE BEFORE EVERY MEAL)
     Route: 065
  25. VITAMIN D3 [Concomitant]
     Active Substance: CHOLECALCIFEROL
     Indication: Product used for unknown indication
     Dosage: 50000 INTERNATIONAL UNIT
     Route: 065
  26. PREGABALIN [Concomitant]
     Active Substance: PREGABALIN
     Indication: Product used for unknown indication
     Dosage: 150MG, 1 CAPSULE TWICE DAILY
     Route: 065
  27. TRAZODONE [Concomitant]
     Active Substance: TRAZODONE HYDROCHLORIDE
     Indication: Insomnia
     Dosage: 50 MILLIGRAM, QD (1 TABLET AT NIGHTTIME)
     Route: 065
  28. NOVOLOG [Concomitant]
     Active Substance: INSULIN ASPART
     Indication: Diabetes mellitus
     Dosage: PEN 7UNITS BEFORE A MEAL, AFTERWARD FOR 4 HOURS, I GO ON A SLIDING SCALE THAT IS 1 UNIT FOR EVERY 25
     Route: 065
  29. TOUJEO [Concomitant]
     Active Substance: INSULIN GLARGINE
     Indication: Product used for unknown indication
     Dosage: 28 UNITS IN THE MORNING
     Route: 065
  30. OXYMETAZOLINE [Concomitant]
     Active Substance: OXYMETAZOLINE
     Indication: Nasal decongestion therapy
     Dosage: 0.05 SPRAY (ONE SPRAY UP EACH NOSTRIL)
     Route: 065
  31. NYSTOP [Concomitant]
     Active Substance: NYSTATIN
     Indication: Product used for unknown indication
     Dosage: 100,000 POWDER FOR APPLICATION
     Route: 065
  32. KETONE [Concomitant]
     Indication: Product used for unknown indication
     Dosage: STRIPS
     Route: 065
  33. METHYL SALICYLATE [Concomitant]
     Active Substance: METHYL SALICYLATE
     Indication: Myalgia
     Dosage: UNK, TID (THREE TIMES DAILY TO POSTERIOR NECK)
     Route: 061
  34. HUMULIN NOS [Concomitant]
     Active Substance: INSULIN HUMAN
     Indication: Insulin therapy
     Dosage: RELION PEN NEEDLES 32G X 4MM, USE TO INJECT INSULIN AS DIRECTED
     Route: 065
  35. GLUCAGON [Concomitant]
     Active Substance: GLUCAGON\GLUCAGON HYDROCHLORIDE\WATER
     Indication: Hypoglycaemia
     Dosage: GVOKE HYPOPEN 1MG PER 0.2MLS
     Route: 065

REACTIONS (14)
  - Diabetic ketoacidotic hyperglycaemic coma [Unknown]
  - Diabetic ketoacidosis [Unknown]
  - Hyperglycaemia [Unknown]
  - Blood glucose increased [Unknown]
  - Hospitalisation [Recovered/Resolved]
  - Ileus paralytic [Unknown]
  - Product dose omission issue [Not Recovered/Not Resolved]
  - Circumstance or information capable of leading to medication error [Unknown]
  - Seizure [Not Recovered/Not Resolved]
  - Seizure [Not Recovered/Not Resolved]
  - Wrong technique in product usage process [Unknown]
  - Memory impairment [Not Recovered/Not Resolved]
  - Urinary tract infection [Not Recovered/Not Resolved]
  - Headache [Not Recovered/Not Resolved]

NARRATIVE: CASE EVENT DATE: 20230215
